FAERS Safety Report 14314429 (Version 3)
Quarter: 2018Q1

REPORT INFORMATION
  Report Type: Spontaneous
  Country: CN (occurrence: CN)
  Receive Date: 20171221
  Receipt Date: 20180116
  Transmission Date: 20180509
  Serious: Yes (Life-Threatening, Hospitalization)
  Sender: FDA-Public Use
  Company Number: CN-ASTRAZENECA-2017SF28438

PATIENT
  Age: 81 Year
  Sex: Female

DRUGS (6)
  1. BETALOC [Suspect]
     Active Substance: METOPROLOL TARTRATE
     Dosage: HALF TABLET
     Route: 048
     Dates: start: 20171205
  2. BETALOC [Suspect]
     Active Substance: METOPROLOL TARTRATE
     Dosage: HALF TABLET
     Route: 048
     Dates: start: 20171213
  3. IRESSA [Suspect]
     Active Substance: GEFITINIB
     Route: 048
     Dates: start: 20171118
  4. IRESSA [Suspect]
     Active Substance: GEFITINIB
     Route: 048
     Dates: start: 20171205
  5. IRESSA [Suspect]
     Active Substance: GEFITINIB
     Route: 048
     Dates: start: 20171223
  6. BETALOC [Suspect]
     Active Substance: METOPROLOL TARTRATE
     Dosage: HALF TABLET
     Route: 048
     Dates: start: 20171122

REACTIONS (23)
  - Fall [Recovered/Resolved]
  - Tongue blistering [Recovered/Resolved]
  - Decreased appetite [Recovered/Resolved]
  - Confusional state [Recovered/Resolved]
  - Throat irritation [Recovered/Resolved]
  - Mental disorder [Recovered/Resolved]
  - Muscular weakness [Recovered/Resolved]
  - Coma [Recovered/Resolved]
  - Dysphemia [Recovered/Resolved]
  - Abdominal pain [Recovered/Resolved]
  - Pruritus [Recovered/Resolved]
  - Feeling abnormal [Recovered/Resolved]
  - Mouth ulceration [Recovered/Resolved]
  - Dysarthria [Recovered/Resolved]
  - Tongue erythema [Recovered/Resolved]
  - Dysphagia [Recovered/Resolved]
  - Tongue disorder [Recovered/Resolved]
  - Diarrhoea [Recovered/Resolved]
  - Asthenia [Recovered/Resolved]
  - Generalised oedema [Recovered/Resolved]
  - Aphasia [Recovered/Resolved]
  - Heart rate increased [Recovered/Resolved]
  - Rash [Recovered/Resolved]

NARRATIVE: CASE EVENT DATE: 20171119
